FAERS Safety Report 9108279 (Version 3)
Quarter: 2013Q2

REPORT INFORMATION
  Report Type: Spontaneous
  Country: CN (occurrence: CN)
  Receive Date: 20130222
  Receipt Date: 20130412
  Transmission Date: 20140414
  Serious: Yes (Other)
  Sender: FDA-Public Use
  Company Number: CN-ABBOTT-13P-035-1053943-00

PATIENT
  Age: 52 Year
  Sex: Female

DRUGS (2)
  1. DEPAKINE CHRONO [Suspect]
     Indication: EPILEPSY
     Dosage: DAILY
     Route: 048
     Dates: start: 2007
  2. DEPAKINE CHRONO [Suspect]
     Dosage: DAILY
     Route: 048
     Dates: start: 20130209

REACTIONS (2)
  - Product counterfeit [Unknown]
  - Epilepsy [Recovered/Resolved]
